FAERS Safety Report 9564052 (Version 1)
Quarter: 2013Q3

REPORT INFORMATION
  Report Type: Report from Study
  Country: US (occurrence: US)
  Receive Date: 20130928
  Receipt Date: 20130928
  Transmission Date: 20140515
  Serious: Yes (Hospitalization, Other)
  Sender: FDA-Public Use
  Company Number: PHEH2013US020007

PATIENT
  Sex: Female

DRUGS (6)
  1. TOBI [Suspect]
     Dosage: 300 MG
  2. CEFEPIME [Concomitant]
     Dosage: UNK
  3. CIPRO ^MILES^ [Concomitant]
     Dosage: UNK
  4. GENTAMICIN [Concomitant]
     Dosage: UNK
  5. TOBRAMYCIN [Concomitant]
     Dosage: UNK
  6. LEVAQUIN [Concomitant]
     Dosage: UNK

REACTIONS (9)
  - Pneumonia [Unknown]
  - Bronchopulmonary aspergillosis allergic [Unknown]
  - Respiratory failure [Unknown]
  - Bronchiectasis [Unknown]
  - Chronic obstructive pulmonary disease [Unknown]
  - Dyspnoea [Unknown]
  - Cough [Unknown]
  - Pseudomonas infection [Unknown]
  - Asthma [Unknown]
